FAERS Safety Report 4277269-X (Version None)
Quarter: 2004Q1

REPORT INFORMATION
  Report Type: 
  Country: None (occurrence: None)
  Receive Date: 20040113
  Receipt Date: 20031022
  Transmission Date: 20041129
  Serious: Yes (Disabling, Other)
  Sender: FDA-Public Use
  Company Number: A0417702A

PATIENT
  Age: 44 Year
  Sex: Male
  Weight: 74.8435 kg

DRUGS (4)
  1. CONTAC 12 HOUR [Suspect]
     Dosage: ORAL
     Route: 048
     Dates: start: 19960101
  2. ALKA-SELTZER PLUS (UNSP.) (FORMULATION UNKNOWN) (ALKA-SELTZER PLUS) (U [Suspect]
     Dosage: ORAL
     Route: 048
     Dates: start: 19951228
  3. TRIAMINIC SRT [Suspect]
     Dosage: ORAL
     Route: 048
     Dates: start: 19960101
  4. THERAFLU (FORMULATION UNKNOWN ) (THERAFLU) [Suspect]
     Dosage: ORAL

REACTIONS (1)
  - NO ADVERSE EFFECT [None]
